FAERS Safety Report 11863173 (Version 2)
Quarter: 2016Q1

REPORT INFORMATION
  Report Type: Report from Study
  Country: US (occurrence: US)
  Receive Date: 20151223
  Receipt Date: 20160217
  Transmission Date: 20160526
  Serious: Yes (Death)
  Sender: FDA-Public Use
  Company Number: US-AMGEN-USASL2015136078

PATIENT
  Age: 80 Year
  Sex: Female

DRUGS (1)
  1. PROCRIT [Suspect]
     Active Substance: ERYTHROPOIETIN
     Indication: PRODUCT USED FOR UNKNOWN INDICATION
     Dosage: UNK
     Route: 065

REACTIONS (1)
  - Death [Fatal]

NARRATIVE: CASE EVENT DATE: 20151205
